FAERS Safety Report 6764197-0 (Version None)
Quarter: 2010Q2

REPORT INFORMATION
  Report Type: 
  Country: None (occurrence: None)
  Receive Date: 20100610
  Receipt Date: 20100602
  Transmission Date: 20101027
  Serious: No
  Sender: FDA-Public Use
  Company Number: B0634162A

PATIENT
  Sex: Female
  Weight: 76.5 kg

DRUGS (8)
  1. TYVERB [Suspect]
     Dosage: 1250MG PER DAY
     Route: 065
     Dates: start: 20080123
  2. CAPECITABINE [Concomitant]
     Dosage: 1500MGM2 PER DAY
     Route: 065
     Dates: start: 20080123
  3. EFFEXOR XR [Concomitant]
     Indication: ELEVATED MOOD
     Dosage: 37.5MG PER DAY
     Route: 048
     Dates: start: 20080117
  4. ALPRAZOLAM [Concomitant]
     Indication: PROPHYLAXIS
     Dosage: 1MG PER DAY
     Route: 048
  5. DAFALGAN [Concomitant]
     Indication: BACK PAIN
     Dosage: 1G PER DAY
     Route: 048
     Dates: start: 20080110
  6. OMEPRAZOLE [Concomitant]
     Indication: PROPHYLAXIS
     Dosage: 20MG PER DAY
     Route: 048
     Dates: start: 20080528
  7. IBUPROFEN [Concomitant]
     Indication: BACK PAIN
     Route: 048
     Dates: start: 20100401
  8. CONTRAMAL [Concomitant]
     Indication: BACK PAIN
     Dosage: 50MG PER DAY
     Route: 048

REACTIONS (1)
  - FATIGUE [None]
